FAERS Safety Report 20971268 (Version 5)
Quarter: 2022Q3

REPORT INFORMATION
  Report Type: Spontaneous
  Country: US (occurrence: US)
  Receive Date: 20220616
  Receipt Date: 20220821
  Transmission Date: 20221027
  Serious: No
  Sender: FDA-Public Use
  Company Number: US-SA-SAC20220608001709

PATIENT
  Age: 39 Year
  Sex: Female

DRUGS (2)
  1. DUPIXENT [Suspect]
     Active Substance: DUPILUMAB
     Indication: Dermatitis atopic
     Dosage: 300 MG, OTHER
     Route: 058
     Dates: start: 202111
  2. DUPIXENT [Suspect]
     Active Substance: DUPILUMAB
     Dosage: 300 MG, OTHER
     Route: 058
     Dates: start: 20211209

REACTIONS (9)
  - Eye infection [Unknown]
  - Eye pruritus [Unknown]
  - Eyelid irritation [Unknown]
  - Dermatitis atopic [Unknown]
  - Conjunctivitis [Unknown]
  - Eye pain [Unknown]
  - Eye pruritus [Unknown]
  - Foreign body sensation in eyes [Unknown]
  - Inappropriate schedule of product administration [Unknown]

NARRATIVE: CASE EVENT DATE: 20220126
